FAERS Safety Report 17825537 (Version 1)
Quarter: 2020Q2

REPORT INFORMATION
  Report Type: Spontaneous
  Country: CA (occurrence: CA)
  Receive Date: 20200526
  Receipt Date: 20200526
  Transmission Date: 20200714
  Serious: Yes (Other)
  Sender: FDA-Public Use
  Company Number: CA-PFIZER INC-2020202826

PATIENT
  Sex: Female

DRUGS (2)
  1. DUAVIVE [Suspect]
     Active Substance: BAZEDOXIFENE ACETATE\ESTROGENS, CONJUGATED
     Indication: MICTURITION URGENCY
     Dosage: UNK
  2. DUAVIVE [Suspect]
     Active Substance: BAZEDOXIFENE ACETATE\ESTROGENS, CONJUGATED
     Indication: HAEMORRHAGE

REACTIONS (10)
  - Weight decreased [Unknown]
  - Product use in unapproved indication [Unknown]
  - Thrombosis [Unknown]
  - Neoplasm malignant [Unknown]
  - Uterine leiomyoma [Unknown]
  - Drug effective for unapproved indication [Unknown]
  - Breast mass [Unknown]
  - Liver disorder [Unknown]
  - Recalled product administered [Unknown]
  - Off label use [Unknown]
